FAERS Safety Report 21386043 (Version 2)
Quarter: 2022Q4

REPORT INFORMATION
  Report Type: Report from Study
  Country: US (occurrence: US)
  Receive Date: 20220928
  Receipt Date: 20221122
  Transmission Date: 20230113
  Serious: Yes (Hospitalization)
  Sender: FDA-Public Use
  Company Number: US-GILEAD-2022-0593869

PATIENT
  Sex: Female

DRUGS (4)
  1. AMBRISENTAN [Suspect]
     Active Substance: AMBRISENTAN
     Indication: Pulmonary hypertension
     Dosage: 5 MG, QD
     Route: 048
     Dates: start: 20170106
  2. TYVASO [Concomitant]
     Active Substance: TREPROSTINIL
     Route: 055
  3. ELIQUIS [Concomitant]
     Active Substance: APIXABAN
  4. AMLODIPINE [Concomitant]
     Active Substance: AMLODIPINE BESYLATE

REACTIONS (5)
  - Heart rate increased [Unknown]
  - Dyspnoea [Recovering/Resolving]
  - Back pain [Not Recovered/Not Resolved]
  - Musculoskeletal discomfort [Not Recovered/Not Resolved]
  - Thyroid disorder [Not Recovered/Not Resolved]
